FAERS Safety Report 21025512 (Version 2)
Quarter: 2024Q2

REPORT INFORMATION
  Report Type: Spontaneous
  Country: ID (occurrence: ID)
  Receive Date: 20220630
  Receipt Date: 20240531
  Transmission Date: 20240716
  Serious: Yes (Death, Other)
  Sender: FDA-Public Use
  Company Number: ID-BoehringerIngelheim-2022-BI-177218

PATIENT
  Age: 56 Year
  Sex: Male

DRUGS (5)
  1. ALTEPLASE [Suspect]
     Active Substance: ALTEPLASE
     Indication: Cerebrovascular accident
     Dosage: 3CC BOLUS
     Route: 065
     Dates: start: 20220601, end: 20220601
  2. ALTEPLASE [Suspect]
     Active Substance: ALTEPLASE
     Dosage: 27 CC VIA SYRINGE PUMP FINISHED IN 1 HOUR
     Route: 065
     Dates: start: 20220601, end: 20220601
  3. SODIUM CHLORIDE [Concomitant]
     Active Substance: SODIUM CHLORIDE
     Indication: Cerebrovascular accident
     Dosage: 0.9%, 20GTT/L
     Route: 042
  4. CITICOLINE [Concomitant]
     Active Substance: CITICOLINE
     Indication: Cerebrovascular accident
     Route: 042
  5. VITAMIN B COMPLEX [Concomitant]
     Active Substance: CYANOCOBALAMIN\DEXPANTHENOL\NIACINAMIDE\PYRIDOXINE HYDROCHLORIDE\RIBOFLAVIN 5^-PHOSPHATE SODIUM\THIA
     Indication: Product used for unknown indication
     Dosage: 3 X 1 TAB

REACTIONS (13)
  - Death [Fatal]
  - Cerebral infarction [Not Recovered/Not Resolved]
  - Respiratory alkalosis [Not Recovered/Not Resolved]
  - Haematuria [Not Recovered/Not Resolved]
  - General physical health deterioration [Not Recovered/Not Resolved]
  - Dengue fever [Not Recovered/Not Resolved]
  - Pneumonia [Not Recovered/Not Resolved]
  - Sepsis [Not Recovered/Not Resolved]
  - Dengue shock syndrome [Not Recovered/Not Resolved]
  - Inguinal hernia [Not Recovered/Not Resolved]
  - Cardiac arrest [Not Recovered/Not Resolved]
  - Cardio-respiratory arrest [Not Recovered/Not Resolved]
  - Pyrexia [Not Recovered/Not Resolved]

NARRATIVE: CASE EVENT DATE: 20220601
